FAERS Safety Report 18357306 (Version 7)
Quarter: 2021Q1

REPORT INFORMATION
  Report Type: Spontaneous
  Country: CA (occurrence: CA)
  Receive Date: 20201008
  Receipt Date: 20210325
  Transmission Date: 20210419
  Serious: Yes (Hospitalization, Other)
  Sender: FDA-Public Use
  Company Number: CA-CELLTRION INC.-2019CA019952

PATIENT

DRUGS (19)
  1. INFLECTRA [Suspect]
     Active Substance: INFLIXIMAB-DYYB
     Dosage: 10 MG/KG
     Route: 042
     Dates: start: 20210219
  2. CALCIUM [Concomitant]
     Active Substance: CALCIUM
     Dosage: UNK
     Route: 065
  3. INFLECTRA [Suspect]
     Active Substance: INFLIXIMAB-DYYB
     Dosage: 10 MG/KG, Q 0 WEEK DOSE (RE?INDUCTION)
     Route: 042
     Dates: start: 20210204, end: 20210204
  4. INFLECTRA [Suspect]
     Active Substance: INFLIXIMAB-DYYB
     Dosage: 10 MG/KG, Q 0 WEEK DOSE (RE?INDUCTION)
     Route: 042
     Dates: start: 20210204, end: 20210204
  5. INFLECTRA [Suspect]
     Active Substance: INFLIXIMAB-DYYB
     Indication: CROHN^S DISEASE
     Dosage: 10 MG/KG, WEEK 0, 2, 6 THEN 5 MG/KG (300MG) EVERY 8 WEEKS
     Route: 042
     Dates: start: 20190325, end: 20210105
  6. INFLECTRA [Suspect]
     Active Substance: INFLIXIMAB-DYYB
     Dosage: 10 MG/KG, WEEK 0, 2, 6 THEN 5 MG/KG
     Route: 042
     Dates: start: 20190325
  7. INFLECTRA [Suspect]
     Active Substance: INFLIXIMAB-DYYB
     Dosage: 10 MG/KG, WEEK 0, 2, 6 THEN 5 MG/KG
     Route: 042
     Dates: start: 20200728, end: 20200728
  8. INFLECTRA [Suspect]
     Active Substance: INFLIXIMAB-DYYB
     Dosage: 10 MG/KG, Q 0 WEEK DOSE (RE?INDUCTION)
     Route: 042
     Dates: start: 20210204, end: 20210204
  9. INFLECTRA [Suspect]
     Active Substance: INFLIXIMAB-DYYB
     Dosage: 10 MG/KG, WEEK 0, 2, 6 THEN 5 MG/KG
     Route: 042
     Dates: start: 20190408
  10. INFLECTRA [Suspect]
     Active Substance: INFLIXIMAB-DYYB
     Dosage: 10 MG/KG, WEEK 0, 2, 6 THEN 5 MG/KG
     Route: 042
     Dates: start: 20191223
  11. INFLECTRA [Suspect]
     Active Substance: INFLIXIMAB-DYYB
     Dosage: 10 MG/KG, WEEK 0, 2, 6 THEN 5 MG/KG
     Route: 042
     Dates: start: 20200930, end: 20200930
  12. IRON [Concomitant]
     Active Substance: IRON
     Dosage: UNK
     Route: 065
  13. PANTOPRAZOLE [Concomitant]
     Active Substance: PANTOPRAZOLE
     Dosage: UNK
     Route: 065
  14. INFLECTRA [Suspect]
     Active Substance: INFLIXIMAB-DYYB
     Dosage: 10 MG/KG, WEEK 0, 2, 6 THEN 5 MG/KG
     Route: 042
     Dates: start: 20190506
  15. INFLECTRA [Suspect]
     Active Substance: INFLIXIMAB-DYYB
     Dosage: 10 MG/KG, WEEK 0, 2, 6 THEN 5 MG/KG
     Route: 042
     Dates: start: 20200320
  16. INFLECTRA [Suspect]
     Active Substance: INFLIXIMAB-DYYB
     Dosage: 10 MG/KG, WEEK 0, 2, 6 THEN 5 MG/KG
     Route: 042
     Dates: start: 20210105, end: 20210105
  17. AZATHIOPRINE. [Concomitant]
     Active Substance: AZATHIOPRINE
     Dosage: UNK
     Route: 065
     Dates: start: 20190318
  18. PREDNISONE. [Concomitant]
     Active Substance: PREDNISONE
     Dosage: UNK (DOSE TAPERING)
     Route: 065
     Dates: start: 20190131
  19. INFLECTRA [Suspect]
     Active Substance: INFLIXIMAB-DYYB
     Dosage: 10 MG/KG, WEEK 0, 2, 6 THEN 5 MG/KG
     Route: 042
     Dates: start: 20190709

REACTIONS (16)
  - Haematochezia [Unknown]
  - Influenza [Recovered/Resolved]
  - Headache [Recovered/Resolved]
  - Malaise [Unknown]
  - Abdominal pain [Unknown]
  - Cough [Recovered/Resolved]
  - Condition aggravated [Unknown]
  - Off label use [Unknown]
  - Nasopharyngitis [Recovered/Resolved]
  - Intentional product use issue [Unknown]
  - Pruritus [Unknown]
  - Product use issue [Unknown]
  - Induration [Unknown]
  - Fatigue [Unknown]
  - Sinusitis [Recovered/Resolved]
  - Inappropriate schedule of product administration [Unknown]

NARRATIVE: CASE EVENT DATE: 20190325
